FAERS Safety Report 4642761-2 (Version None)
Quarter: 2005Q2

REPORT INFORMATION
  Report Type: 
  Country: None (occurrence: None)
  Receive Date: 20050422
  Receipt Date: 20050316
  Transmission Date: 20051028
  Serious: Yes (Other)
  Sender: FDA-Public Use
  Company Number: CA-JNJFOC-20050405053

PATIENT
  Sex: Female
  Weight: 68.04 kg

DRUGS (2)
  1. EXTRA STRENGTH TYLENOL EZ TAB [Suspect]
     Route: 049
  2. EXTRA STRENGTH TYLENOL EZ TAB [Suspect]
     Indication: PAIN
     Dosage: 500-1000 MG, PRN, ON AVERAGE ONCE A DAY
     Route: 049

REACTIONS (1)
  - HEPATOCELLULAR DAMAGE [None]
